FAERS Safety Report 5138093-9 (Version None)
Quarter: 2006Q4

REPORT INFORMATION
  Report Type: 
  Country: None (occurrence: None)
  Receive Date: 20061030
  Receipt Date: 20060410
  Transmission Date: 20070319
  Serious: No
  Sender: FDA-Public Use
  Company Number: US-GLAXOSMITHKLINE-A0601733A

PATIENT
  Age: 12 Year
  Sex: Male

DRUGS (1)
  1. ADVAIR HFA [Suspect]
     Indication: DRUG USE FOR UNKNOWN INDICATION
     Route: 055

REACTIONS (3)
  - ABNORMAL BEHAVIOUR [None]
  - AGITATION [None]
  - ANGER [None]
